FAERS Safety Report 21644299 (Version 1)
Quarter: 2022Q4

REPORT INFORMATION
  Report Type: Report from Study
  Country: CO (occurrence: CO)
  Receive Date: 20221125
  Receipt Date: 20221125
  Transmission Date: 20230113
  Serious: Yes (Life-Threatening, Hospitalization, Other)
  Sender: FDA-Public Use
  Company Number: CO-002147023-NVSC2022CO265187

PATIENT
  Sex: Female

DRUGS (1)
  1. KISQALI [Suspect]
     Active Substance: RIBOCICLIB
     Indication: Hormone receptor positive HER2 negative breast cancer
     Dosage: UNK UNK, QD
     Route: 048

REACTIONS (6)
  - Decreased immune responsiveness [Unknown]
  - Metastases to central nervous system [Unknown]
  - Deafness [Unknown]
  - Eating disorder [Unknown]
  - Headache [Not Recovered/Not Resolved]
  - Vomiting [Unknown]
